FAERS Safety Report 9785682 (Version 6)
Quarter: 2016Q1

REPORT INFORMATION
  Report Type: Report from Study
  Country: US (occurrence: US)
  Receive Date: 20131227
  Receipt Date: 20160314
  Transmission Date: 20160526
  Serious: Yes (Hospitalization, Other)
  Sender: FDA-Public Use
  Company Number: US-SA-2013SA133306

PATIENT
  Age: 62 Year
  Sex: Female

DRUGS (2)
  1. AUBAGIO [Suspect]
     Active Substance: TERIFLUNOMIDE
     Indication: MULTIPLE SCLEROSIS
     Route: 048
     Dates: start: 20130906, end: 201602
  2. AUBAGIO [Suspect]
     Active Substance: TERIFLUNOMIDE
     Indication: MULTIPLE SCLEROSIS
     Route: 048
     Dates: start: 20130906, end: 201602

REACTIONS (13)
  - Pain [Not Recovered/Not Resolved]
  - Balance disorder [Not Recovered/Not Resolved]
  - Wrist fracture [Not Recovered/Not Resolved]
  - Tremor [Not Recovered/Not Resolved]
  - Condition aggravated [Not Recovered/Not Resolved]
  - Gait disturbance [Not Recovered/Not Resolved]
  - Rotator cuff repair [Unknown]
  - Fall [Unknown]
  - Multiple sclerosis relapse [Not Recovered/Not Resolved]
  - Exostosis [Recovered/Resolved]
  - Gait disturbance [Not Recovered/Not Resolved]
  - Hernia hiatus repair [Not Recovered/Not Resolved]
  - Alopecia [Not Recovered/Not Resolved]

NARRATIVE: CASE EVENT DATE: 2013
